FAERS Safety Report 14418121 (Version 2)
Quarter: 2018Q1

REPORT INFORMATION
  Report Type: Spontaneous
  Country: US (occurrence: US)
  Receive Date: 20180122
  Receipt Date: 20180222
  Transmission Date: 20180509
  Serious: Yes (Death, Life-Threatening, Hospitalization, Other)
  Sender: FDA-Public Use
  Company Number: US-AMGEN-USASP2018008076

PATIENT
  Age: 87 Year
  Sex: Female

DRUGS (1)
  1. PARSABIV [Suspect]
     Active Substance: ETELCALCETIDE HYDROCHLORIDE
     Indication: HYPERPARATHYROIDISM SECONDARY
     Dosage: UNK, 3 TIMES/WK
     Route: 065
     Dates: start: 201709

REACTIONS (3)
  - Ventricular fibrillation [Unknown]
  - Cardiac arrest [Fatal]
  - Decubitus ulcer [Unknown]
